FAERS Safety Report 8382534-0 (Version None)
Quarter: 2012Q2

REPORT INFORMATION
  Report Type: 
  Country: None (occurrence: None)
  Receive Date: 20120522
  Receipt Date: 20110719
  Transmission Date: 20120825
  Serious: Yes (Death)
  Sender: FDA-Public Use
  Company Number: 2011-02009

PATIENT
  Sex: Male

DRUGS (1)
  1. IMMUCYST [Suspect]
     Indication: BLADDER CANCER
     Dosage: 81.0 MG I.VES., BLADDER
     Dates: start: 20080820

REACTIONS (4)
  - PULMONARY GRANULOMA [None]
  - RESPIRATORY FAILURE [None]
  - PNEUMONITIS [None]
  - PULMONARY FIBROSIS [None]
